FAERS Safety Report 4405853-9 (Version None)
Quarter: 2004Q3

REPORT INFORMATION
  Report Type: 
  Country: None (occurrence: None)
  Receive Date: 20040723
  Receipt Date: 20040116
  Transmission Date: 20050211
  Serious: No
  Sender: FDA-Public Use
  Company Number: US-GLAXOSMITHKLINE-A0493586A

PATIENT
  Age: 71 Year
  Sex: Male

DRUGS (10)
  1. AVANDIA [Suspect]
     Dosage: 2MG PER DAY
     Route: 048
     Dates: start: 20031216
  2. GLUCOTROL XL [Concomitant]
  3. GLUCOPHAGE [Concomitant]
  4. COREG [Concomitant]
  5. DIGOXIN [Concomitant]
  6. LASIX [Concomitant]
  7. ZETIA [Concomitant]
  8. FOLTX [Concomitant]
  9. FISH OILS [Concomitant]
  10. COENZYME Q10 [Concomitant]

REACTIONS (1)
  - HYPERGLYCAEMIA [None]
